FAERS Safety Report 9403359 (Version 1)
Quarter: 2013Q3

REPORT INFORMATION
  Report Type: Spontaneous
  Country: FR (occurrence: FR)
  Receive Date: 20130716
  Receipt Date: 20130716
  Transmission Date: 20140515
  Serious: Yes (Hospitalization)
  Sender: FDA-Public Use
  Company Number: FR-009507513-1307FRA004308

PATIENT
  Age: 27 Year
  Sex: Female

DRUGS (7)
  1. GONADOTROPHINE CHORIONIQUE ENDO 5000 UI/1ML [Suspect]
     Indication: IN VITRO FERTILISATION
     Dosage: 10000 IU, ONCE
     Route: 030
     Dates: start: 20091017, end: 20091017
  2. DECAPEPTYL (TRIPTORELIN ACETATE) [Suspect]
     Indication: IN VITRO FERTILISATION
     Dosage: 0.1 ML, QD
     Route: 058
     Dates: start: 20090924, end: 200910
  3. GONAL-F [Suspect]
     Indication: IN VITRO FERTILISATION
     Dosage: 225 IU, QD
     Route: 058
     Dates: start: 20091009, end: 20091011
  4. GONAL-F [Suspect]
     Dosage: 150 IU, QD
     Route: 058
     Dates: start: 20091012, end: 20091013
  5. GONAL-F [Suspect]
     Dosage: 112.5 IU, QD
     Route: 058
     Dates: start: 20091014, end: 20091015
  6. GONAL-F [Suspect]
     Dosage: 75 IU, QD
     Route: 058
     Dates: start: 20091016, end: 20091016
  7. PROVAMES [Suspect]
     Dosage: 2 MG, QD
     Route: 048
     Dates: start: 20091019, end: 20091103

REACTIONS (3)
  - Cerebral thrombosis [Recovering/Resolving]
  - Headache [None]
  - Back pain [None]
